FAERS Safety Report 13367092 (Version 1)
Quarter: 2017Q1

REPORT INFORMATION
  Report Type: Spontaneous
  Country: PL (occurrence: PL)
  Receive Date: 20170324
  Receipt Date: 20170324
  Transmission Date: 20170429
  Serious: Yes (Other)
  Sender: FDA-Public Use
  Company Number: PL-ORION CORPORATION ORION PHARMA-SOLO2017-0008

PATIENT
  Sex: Male

DRUGS (2)
  1. METHOTREXATE. [Suspect]
     Active Substance: METHOTREXATE
     Indication: IMMUNOSUPPRESSION
     Route: 065
  2. METHYLPREDNISOLONE. [Suspect]
     Active Substance: METHYLPREDNISOLONE
     Dosage: WITHIN ONE MONTH, INFUSION IN THE SAME DOSE WAS REPEATED 3 TIMES DURING REGULAR VISITS TO HOSPITAL
     Route: 042

REACTIONS (6)
  - Bronchitis [Unknown]
  - Pneumonia [Unknown]
  - Weight increased [Recovering/Resolving]
  - Cushingoid [Recovering/Resolving]
  - Drug dependence [Unknown]
  - Diabetes mellitus [Recovering/Resolving]
